APPROVED DRUG PRODUCT: ESTAZOLAM
Active Ingredient: ESTAZOLAM
Strength: 1MG
Dosage Form/Route: TABLET;ORAL
Application: A074826 | Product #001 | TE Code: AB
Applicant: NOVITIUM PHARMA LLC
Approved: Jul 3, 1997 | RLD: No | RS: No | Type: RX